FAERS Safety Report 11573283 (Version 2)
Quarter: 2015Q4

REPORT INFORMATION
  Report Type: Spontaneous
  Country: US (occurrence: US)
  Receive Date: 20150916
  Receipt Date: 20151120
  Transmission Date: 20160304
  Serious: No
  Sender: FDA-Public Use
  Company Number: US-ELI_LILLY_AND_COMPANY-US200910006881

PATIENT
  Sex: Female

DRUGS (4)
  1. CALCIUM [Concomitant]
     Active Substance: CALCIUM
     Dosage: 600 MG, QD
  2. FORTEO [Suspect]
     Active Substance: TERIPARATIDE
     Indication: OSTEOPOROSIS
     Dosage: 20 UG, DAILY (1/D)
     Dates: start: 200904, end: 20091017
  3. FORTEO [Suspect]
     Active Substance: TERIPARATIDE
     Dosage: 20 UG, DAILY (1/D)
  4. CALCIUM [Concomitant]
     Active Substance: CALCIUM
     Dosage: 1200 MG, QD

REACTIONS (4)
  - Fatigue [Unknown]
  - Asthenia [Unknown]
  - Hair disorder [Unknown]
  - Alopecia [Unknown]

NARRATIVE: CASE EVENT DATE: 2009
